FAERS Safety Report 5334018-1 (Version None)
Quarter: 2007Q2

REPORT INFORMATION
  Report Type: 
  Country: None (occurrence: None)
  Receive Date: 20070524
  Receipt Date: 20070515
  Transmission Date: 20071010
  Serious: Yes (Other)
  Sender: FDA-Public Use
  Company Number: FR-PFIZER INC-2007039574

PATIENT
  Sex: Male

DRUGS (3)
  1. TAHOR [Suspect]
  2. ASPIRIN [Concomitant]
  3. PERINDOPRIL ERBUMINE [Concomitant]

REACTIONS (6)
  - ABDOMINAL DISTENSION [None]
  - CARDIAC DISORDER [None]
  - MUSCLE SPASMS [None]
  - MUSCULOSKELETAL CHEST PAIN [None]
  - RENAL PAIN [None]
  - WEIGHT DECREASED [None]
